FAERS Safety Report 5113498-0 (Version None)
Quarter: 2006Q3

REPORT INFORMATION
  Report Type: 
  Country: None (occurrence: None)
  Receive Date: 20060920
  Receipt Date: 20060906
  Transmission Date: 20061208
  Serious: Yes (Hospitalization)
  Sender: FDA-Public Use
  Company Number: 02100-JPN-06-0372

PATIENT
  Age: 77 Year
  Sex: Female

DRUGS (5)
  1. CILOSTAZOL [Suspect]
     Indication: LACUNAR INFARCTION
     Dosage: 200 MG ORAL
     Route: 048
     Dates: start: 20040518, end: 20051117
  2. ASPIRIN [Suspect]
     Dosage: 100 MG ORAL
     Route: 048
     Dates: start: 20040907, end: 20051117
  3. TIZANIDINE HCL [Concomitant]
  4. LOXOPROFEN SODIUM [Concomitant]
  5. REBAMIPIDE [Concomitant]

REACTIONS (7)
  - FIBROSIS [None]
  - GASTRIC ULCER HAEMORRHAGE [None]
  - GASTRITIS [None]
  - HELICOBACTER PYLORI IDENTIFICATION TEST POSITIVE [None]
  - IRON DEFICIENCY ANAEMIA [None]
  - MALLORY-WEISS SYNDROME [None]
  - SCAR [None]
